FAERS Safety Report 18376634 (Version 1)
Quarter: 2020Q4

REPORT INFORMATION
  Report Type: Spontaneous
  Country: US (occurrence: US)
  Receive Date: 20201012
  Receipt Date: 20201012
  Transmission Date: 20210114
  Serious: No
  Sender: FDA-Public Use
  Company Number: None

PATIENT
  Age: 53 Year
  Sex: Female
  Weight: 88.27 kg

DRUGS (4)
  1. OXALIPLATIN. [Suspect]
     Active Substance: OXALIPLATIN
     Indication: COLORECTAL CANCER
     Dosage: ?          OTHER FREQUENCY:X1;?
     Route: 042
     Dates: start: 20201012, end: 20201012
  2. GRANISETRON 1MG IVPB [Concomitant]
     Dates: start: 20201012, end: 20201012
  3. DEXAMETHSONE 10MG IVPB [Concomitant]
     Dates: start: 20201012, end: 20201012
  4. EMEND 150MG IVPB [Concomitant]
     Dates: start: 20201012, end: 20201012

REACTIONS (3)
  - Oxygen saturation decreased [None]
  - Infusion related reaction [None]
  - Nausea [None]

NARRATIVE: CASE EVENT DATE: 20201012
